FAERS Safety Report 4576812-0 (Version None)
Quarter: 2005Q1

REPORT INFORMATION
  Report Type: 
  Country: None (occurrence: None)
  Receive Date: 20050210
  Receipt Date: 20050203
  Transmission Date: 20050727
  Serious: Yes (Death, Hospitalization)
  Sender: FDA-Public Use
  Company Number: CA-BRISTOL-MYERS SQUIBB COMPANY-12854030

PATIENT
  Age: 58 Year
  Sex: Female
  Weight: 56 kg

DRUGS (5)
  1. CETUXIMAB [Suspect]
     Indication: COLORECTAL CANCER METASTATIC
     Dosage: INITIATED ON 26-OCT-04 (LD=600MG). D/C STUDY ON 23-NOV-04. PT REC'D 2 DOSES.
     Route: 042
     Dates: start: 20041123
  2. LEVOFLOXACIN [Concomitant]
     Indication: COUGH
     Dates: start: 20041021
  3. FOSINOPRIL SODIUM [Concomitant]
     Indication: HYPERTENSION
     Dates: start: 19960101
  4. RENEDIL [Concomitant]
     Indication: HYPERTENSION
     Dates: start: 19960101
  5. ATORVASTATIN [Concomitant]
     Indication: HYPERCHOLESTEROLAEMIA
     Dates: start: 20040101

REACTIONS (9)
  - ANOREXIA [None]
  - ASCITES [None]
  - COLORECTAL CANCER METASTATIC [None]
  - COUGH [None]
  - DYSPNOEA [None]
  - FATIGUE [None]
  - MALIGNANT NEOPLASM PROGRESSION [None]
  - OEDEMA PERIPHERAL [None]
  - TACHYCARDIA [None]
